FAERS Safety Report 7568899-8 (Version None)
Quarter: 2011Q2

REPORT INFORMATION
  Report Type: 
  Country: None (occurrence: None)
  Receive Date: 20110623
  Receipt Date: 20110616
  Transmission Date: 20111010
  Serious: Yes (Other)
  Sender: FDA-Public Use
  Company Number: US-PFIZER INC-2011133040

PATIENT
  Age: 74 Year
  Sex: Female

DRUGS (2)
  1. SYMBYAX [Suspect]
     Dosage: UNKNOWN
  2. PRISTIQ [Suspect]
     Dosage: UNK
     Dates: start: 20110525

REACTIONS (3)
  - HYPERHIDROSIS [None]
  - SEROTONIN SYNDROME [None]
  - PRURITUS [None]
